FAERS Safety Report 9771028 (Version 1)
Quarter: 2013Q4

REPORT INFORMATION
  Report Type: Spontaneous
  Country: GB (occurrence: GB)
  Receive Date: 20131218
  Receipt Date: 20131218
  Transmission Date: 20140711
  Serious: Yes (Other)
  Sender: FDA-Public Use
  Company Number: PHHY2013GB144966

PATIENT
  Age: 40 Year
  Sex: Female

DRUGS (11)
  1. FLUCONAZOLE [Suspect]
     Indication: OESOPHAGEAL CANDIDIASIS
     Dosage: 200 MG, QD (200MG DAILY FOR 14 DAYS)
     Route: 048
     Dates: start: 20131117, end: 20131122
  2. CITALOPRAM [Suspect]
     Indication: DEPRESSION
     Dosage: 20 MG, QD (LONG STANDING TREATMENT.)
     Route: 048
  3. SULFASALAZINE [Concomitant]
  4. CO-CODAMOL [Concomitant]
  5. OMEPRAZOLE [Concomitant]
  6. DALTEPARIN [Concomitant]
  7. CALCEOS [Concomitant]
  8. FOLIC ACID [Concomitant]
  9. COLECALCIFEROL [Concomitant]
  10. MORPHINE [Concomitant]
  11. NEFOPAM [Concomitant]

REACTIONS (4)
  - Hallucination, visual [Recovered/Resolved]
  - Hallucination, auditory [Recovered/Resolved]
  - Drug level increased [Unknown]
  - Drug interaction [Unknown]
